FAERS Safety Report 10289488 (Version 5)
Quarter: 2014Q4

REPORT INFORMATION
  Report Type: Report from Study
  Country: US (occurrence: US)
  Receive Date: 20140710
  Receipt Date: 20141008
  Transmission Date: 20150528
  Serious: Yes (Other)
  Sender: FDA-Public Use
  Company Number: US-009507513-1407USA002619

PATIENT
  Age: 53 Year
  Sex: Female
  Weight: 58.5 kg

DRUGS (18)
  1. DEXAMETHASONE. [Concomitant]
     Active Substance: DEXAMETHASONE
     Dosage: UNK
     Route: 048
     Dates: start: 2013
  2. LORAZEPAM. [Concomitant]
     Active Substance: LORAZEPAM
     Dosage: UNK
     Dates: start: 20140312
  3. TEMODAR [Suspect]
     Active Substance: TEMOZOLOMIDE
     Indication: GLIOBLASTOMA
     Dosage: 245 MG, QD
     Route: 048
     Dates: start: 20140221, end: 20140320
  4. MACITENTAN [Suspect]
     Active Substance: MACITENTAN
     Indication: GLIOBLASTOMA
     Dosage: 150 MG, QD
     Route: 048
     Dates: start: 20140116
  5. NUVIGIL [Concomitant]
     Active Substance: ARMODAFINIL
  6. AMITRIPTYLINE PAMOATE [Concomitant]
     Active Substance: AMITRIPTYLINE PAMOATE
     Dosage: UNK
     Dates: start: 20140312
  7. VITAMINS (UNSPECIFIED) [Concomitant]
     Active Substance: VITAMINS
  8. TEMODAR [Suspect]
     Active Substance: TEMOZOLOMIDE
     Dosage: 245 MG, QD
     Route: 048
     Dates: start: 20140516, end: 20140612
  9. LEVETIRACETAM. [Concomitant]
     Active Substance: LEVETIRACETAM
     Dosage: UNK
     Dates: start: 2013
  10. LUPRON [Concomitant]
     Active Substance: LEUPROLIDE ACETATE
  11. COLACE [Concomitant]
     Active Substance: DOCUSATE SODIUM
     Dosage: UNK
     Dates: start: 20140312
  12. VITAMIN D [Concomitant]
     Active Substance: CHOLECALCIFEROL
  13. MIRALAX [Concomitant]
     Active Substance: POLYETHYLENE GLYCOL 3350
     Dosage: UNK
     Route: 048
     Dates: start: 20140306
  14. FLUOCINONIDE. [Concomitant]
     Active Substance: FLUOCINONIDE
     Dosage: UNK
     Dates: start: 20140312
  15. LEVONORGESTREL. [Concomitant]
     Active Substance: LEVONORGESTREL
  16. ONDANSETRON HYDROCHLORIDE. [Concomitant]
     Active Substance: ONDANSETRON HYDROCHLORIDE
     Dosage: UNK
     Dates: start: 20140312
  17. CALCIUM CARBONATE. [Concomitant]
     Active Substance: CALCIUM CARBONATE
  18. SUMATRIPTAN. [Concomitant]
     Active Substance: SUMATRIPTAN

REACTIONS (3)
  - Lymphocyte count decreased [Recovered/Resolved]
  - Lymphocyte count decreased [Recovered/Resolved]
  - Lymphocyte count decreased [Recovered/Resolved]

NARRATIVE: CASE EVENT DATE: 20140409
